FAERS Safety Report 6535053-8 (Version None)
Quarter: 2010Q1

REPORT INFORMATION
  Report Type: 
  Country: None (occurrence: None)
  Receive Date: 20100111
  Receipt Date: 20100111
  Transmission Date: 20100710
  Serious: Yes (Hospitalization)
  Sender: FDA-Public Use
  Company Number: None

PATIENT
  Sex: Female
  Weight: 71.6683 kg

DRUGS (6)
  1. CHANTIX [Suspect]
     Indication: SMOKING CESSATION THERAPY
     Dosage: 0.5 MG TABLET DAILY X3D BID X4D PO, 1 MG TABLET D X 13 DAYS PO
     Route: 048
     Dates: start: 20091204, end: 20091214
  2. CHANTIX [Suspect]
     Indication: SMOKING CESSATION THERAPY
     Dosage: 0.5 MG TABLET DAILY X3D BID X4D PO, 1 MG TABLET D X 13 DAYS PO
     Route: 048
     Dates: start: 20091215, end: 20091226
  3. SINGULAIR [Concomitant]
  4. ZOLOFT [Concomitant]
  5. MULTI-VITAMIN [Concomitant]
  6. ADVAIR DISKUS 100/50 [Concomitant]

REACTIONS (2)
  - ASTHMA [None]
  - CONDITION AGGRAVATED [None]
